FAERS Safety Report 19275450 (Version 1)
Quarter: 2021Q2

REPORT INFORMATION
  Report Type: Spontaneous
  Country: US (occurrence: US)
  Receive Date: 20210519
  Receipt Date: 20210519
  Transmission Date: 20210717
  Serious: Yes (Other)
  Sender: FDA-Public Use
  Company Number: US-LUPIN PHARMACEUTICALS INC.-2021-07117

PATIENT
  Age: 53 Year
  Sex: Female

DRUGS (21)
  1. MUPIROCIN. [Suspect]
     Active Substance: MUPIROCIN
     Indication: BRACHIORADIAL PRURITUS
     Dosage: UNK
     Route: 061
  2. DUPILUMAB [Concomitant]
     Active Substance: DUPILUMAB
     Dosage: 300 MILLIGRAM, FOLLOWED BY 300 MG EVERY 2 WEEKS
     Route: 065
  3. PRAMOXINE [Concomitant]
     Active Substance: PRAMOXINE
     Indication: BRACHIORADIAL PRURITUS
     Dosage: UNK
     Route: 061
  4. SULFAMETHOXAZOLE AND TRIMETHOPRIM [Suspect]
     Active Substance: SULFAMETHOXAZOLE\TRIMETHOPRIM
     Indication: BRACHIORADIAL PRURITUS
     Dosage: UNK
     Route: 065
  5. CEPHALEXIN. [Suspect]
     Active Substance: CEPHALEXIN
     Indication: CELLULITIS
  6. SULFAMETHOXAZOLE AND TRIMETHOPRIM [Suspect]
     Active Substance: SULFAMETHOXAZOLE\TRIMETHOPRIM
     Indication: CELLULITIS
  7. CEPHALEXIN. [Suspect]
     Active Substance: CEPHALEXIN
     Indication: BRACHIORADIAL PRURITUS
     Dosage: 500 MILLIGRAM
     Route: 065
  8. TRIAMCINOLONE ACETONIDE CREAM [Suspect]
     Active Substance: TRIAMCINOLONE ACETONIDE
     Indication: BRACHIORADIAL PRURITUS
     Dosage: UNK
     Route: 061
  9. OZENOXACIN. [Suspect]
     Active Substance: OZENOXACIN
     Indication: BRACHIORADIAL PRURITUS
     Dosage: UNK
     Route: 061
  10. DOXEPIN HYDROCHLORIDE. [Suspect]
     Active Substance: DOXEPIN HYDROCHLORIDE
     Indication: BRACHIORADIAL PRURITUS
     Dosage: UNK
     Route: 061
  11. FEXOFENADINE [Suspect]
     Active Substance: FEXOFENADINE HYDROCHLORIDE
     Indication: BRACHIORADIAL PRURITUS
     Dosage: UNK
     Route: 065
  12. FLUOCINONIDE. [Suspect]
     Active Substance: FLUOCINONIDE
     Indication: BRACHIORADIAL PRURITUS
     Dosage: UNK (CREAM)
     Route: 061
  13. CLOBETASOL PROPIONATE. [Suspect]
     Active Substance: CLOBETASOL PROPIONATE
     Indication: BRACHIORADIAL PRURITUS
     Dosage: UNK OINTMENT
     Route: 061
  14. HYDROXYZINE [Suspect]
     Active Substance: HYDROXYZINE HYDROCHLORIDE
     Indication: BRACHIORADIAL PRURITUS
     Dosage: UNK
     Route: 065
  15. DUPILUMAB [Concomitant]
     Active Substance: DUPILUMAB
     Indication: BRACHIORADIAL PRURITUS
     Dosage: 600 MILLIGRAM, DUPILUMAB WITH A 600 MG LOADING DOSE
     Route: 065
  16. AMITRIPTYLINE [Concomitant]
     Active Substance: AMITRIPTYLINE
     Indication: BRACHIORADIAL PRURITUS
     Dosage: UNK, 20?25MG
     Route: 065
  17. CETIRIZINE [Suspect]
     Active Substance: CETIRIZINE HYDROCHLORIDE
     Indication: BRACHIORADIAL PRURITUS
     Dosage: UNK
     Route: 065
  18. PREGABALIN. [Suspect]
     Active Substance: PREGABALIN
     Indication: BRACHIORADIAL PRURITUS
     Dosage: UNK
     Route: 065
  19. OZENOXACIN. [Suspect]
     Active Substance: OZENOXACIN
     Indication: CELLULITIS
  20. CRISABOROLE [Suspect]
     Active Substance: CRISABOROLE
     Indication: BRACHIORADIAL PRURITUS
     Dosage: UNK
     Route: 061
  21. GABAPENTIN. [Suspect]
     Active Substance: GABAPENTIN
     Indication: BRACHIORADIAL PRURITUS
     Dosage: UNK
     Route: 065

REACTIONS (1)
  - Drug ineffective [Unknown]
